FAERS Safety Report 6895958-5 (Version None)
Quarter: 2010Q3

REPORT INFORMATION
  Report Type: 
  Country: None (occurrence: None)
  Receive Date: 20100802
  Receipt Date: 20100723
  Transmission Date: 20110219
  Serious: Yes (Hospitalization)
  Sender: FDA-Public Use
  Company Number: JP-ABBOTT-10P-087-0657435-00

PATIENT
  Sex: Male

DRUGS (5)
  1. CLARITHROMYCIN [Suspect]
     Indication: SINUSITIS
     Route: 048
     Dates: start: 20090108, end: 20090129
  2. HANGESHASHINTO GRA [Suspect]
     Indication: GASTRITIS
     Dosage: 3G BID
     Route: 048
     Dates: start: 20090114, end: 20090203
  3. ALLEGRA [Concomitant]
     Indication: RHINITIS ALLERGIC
     Route: 048
     Dates: start: 20090122, end: 20090203
  4. MUCODYNE [Concomitant]
     Indication: SINUSITIS
     Route: 048
     Dates: start: 20090122, end: 20090203
  5. KIPRES [Concomitant]
     Indication: RHINITIS ALLERGIC
     Route: 048
     Dates: start: 20090109, end: 20090120

REACTIONS (1)
  - INTERSTITIAL LUNG DISEASE [None]
